FAERS Safety Report 14452338 (Version 1)
Quarter: 2018Q1

REPORT INFORMATION
  Report Type: Spontaneous
  Country: CA (occurrence: US)
  Receive Date: 20180129
  Receipt Date: 20180129
  Transmission Date: 20180509
  Serious: No
  Sender: FDA-Public Use
  Company Number: US-APOLLO HEALTH AND BEAUTY CARE INC.-2040940

PATIENT
  Sex: Female

DRUGS (1)
  1. EQUATE EVERYDAY CLEAN [Suspect]
     Active Substance: PYRITHIONE ZINC

REACTIONS (1)
  - Acne [Unknown]

NARRATIVE: CASE EVENT DATE: 20171004
